FAERS Safety Report 8846768 (Version 2)
Quarter: 2012Q4

REPORT INFORMATION
  Report Type: 
  Country: US (occurrence: None)
  Receive Date: 20121018
  Receipt Date: 20121018
  Transmission Date: 20130627
  Serious: Yes (Hospitalization, Other)
  Sender: FDA-Public Use
  Company Number: None

PATIENT
  Age: 51 Year
  Sex: Male
  Weight: 92.99 kg

DRUGS (8)
  1. TRIAMCINOLONE [Suspect]
     Indication: ACHE
     Dosage: 40mg - 60mg one time Intra-articular
     Dates: start: 20120814, end: 20120814
  2. TRIAMCINOLONE [Suspect]
     Indication: PAIN
     Dosage: 40mg - 60mg one time Intra-articular
     Dates: start: 20120814, end: 20120814
  3. TRIAMCINOLONE [Suspect]
     Indication: BURNING SENSATION
     Dosage: 40mg - 60mg one time Intra-articular
     Dates: start: 20120814, end: 20120814
  4. TRIAMCINOLONE [Suspect]
     Indication: PAIN
     Dosage: 40mg - 60mg one time Intra-articular
     Dates: start: 20120814, end: 20120814
  5. BUPIVACAINE HYDROCHLORIDE [Suspect]
     Dosage: 4-6ml one time Intra-articular
     Dates: start: 20120814, end: 20120814
  6. BUPIVACAINE HYDROCHLORIDE [Suspect]
     Dosage: 4-6ml one time Intra-articular
     Dates: start: 20120814, end: 20120814
  7. BUPIVACAINE HYDROCHLORIDE [Suspect]
     Dosage: 4-6ml one time Intra-articular
     Dates: start: 20120814, end: 20120814
  8. BUPIVACAINE HYDROCHLORIDE [Suspect]
     Dosage: 4-6ml one time Intra-articular
     Dates: start: 20120814, end: 20120814

REACTIONS (6)
  - Pyrexia [None]
  - Headache [None]
  - Malaise [None]
  - Asthenia [None]
  - Extradural abscess [None]
  - Meningitis [None]
